FAERS Safety Report 8177914-2 (Version None)
Quarter: 2012Q1

REPORT INFORMATION
  Report Type: 
  Country: None (occurrence: None)
  Receive Date: 20120130
  Receipt Date: 20110104
  Transmission Date: 20120608
  Serious: Yes (Other)
  Sender: FDA-Public Use
  Company Number: 024021

PATIENT
  Age: 33 Year
  Sex: Male

DRUGS (3)
  1. KEPPRA [Suspect]
     Indication: EPILEPSY
     Dosage: (750 MG, 2 TABLETS TWICE DAILY)
     Dates: start: 20060101
  2. DEPAKOTE ER [Suspect]
     Indication: EPILEPSY
     Dosage: (500 MG, 2 TABLETS TWICE DAILY)
     Dates: start: 20000101
  3. LAMICTAL [Suspect]
     Indication: EPILEPSY
     Dosage: (450 MG, 2 TABLETS (25MG) + 2 TABLETS (200MG) AT BED TIME)

REACTIONS (1)
  - CONVULSION [None]
